FAERS Safety Report 5844230-0 (Version None)
Quarter: 2008Q3

REPORT INFORMATION
  Report Type: 
  Country: None (occurrence: None)
  Receive Date: 20080813
  Receipt Date: 20080806
  Transmission Date: 20090109
  Serious: Yes (Other)
  Sender: FDA-Public Use
  Company Number: CA-AMGEN-KDL295885

PATIENT
  Sex: Female
  Weight: 75 kg

DRUGS (5)
  1. NEULASTA [Suspect]
     Indication: CHEMOTHERAPY
     Route: 058
     Dates: start: 20080716, end: 20080716
  2. FLUOROURACIL [Concomitant]
     Dates: start: 20080619
  3. EPIRUBICIN [Concomitant]
     Dates: start: 20080619
  4. CYCLOPHOSPHAMIDE [Concomitant]
     Dates: start: 20080619
  5. DECADRON SRC [Concomitant]
     Dates: start: 20080714, end: 20080716

REACTIONS (12)
  - DIARRHOEA [None]
  - DIZZINESS [None]
  - EAR PRURITUS [None]
  - HYPERSENSITIVITY [None]
  - HYPOTENSION [None]
  - INJECTION SITE SWELLING [None]
  - OEDEMA MOUTH [None]
  - PHARYNGEAL OEDEMA [None]
  - SWOLLEN TONGUE [None]
  - SYNCOPE [None]
  - URTICARIA [None]
  - VOMITING [None]
